FAERS Safety Report 15303604 (Version 8)
Quarter: 2019Q3

REPORT INFORMATION
  Report Type: Spontaneous
  Country: US (occurrence: US)
  Receive Date: 20180821
  Receipt Date: 20190924
  Transmission Date: 20191004
  Serious: Yes (Hospitalization)
  Sender: FDA-Public Use
  Company Number: US-VIFOR (INTERNATIONAL) INC.-VIT-2018-08215

PATIENT
  Age: 61 Year
  Sex: Male

DRUGS (11)
  1. FOLGARD OS [Concomitant]
     Active Substance: CALCIUM\CHOLECALCIFEROL\CYANOCOBALAMIN\FOLIC ACID\MAGNESIUM\PHOSPHORUS\PYRIDOXINE\RIBOFLAVIN
  2. CARVEDILOL. [Concomitant]
     Active Substance: CARVEDILOL
  3. VELTASSA [Suspect]
     Active Substance: PATIROMER
     Indication: HYPERKALAEMIA
     Route: 048
     Dates: start: 20180801
  4. VELTASSA [Suspect]
     Active Substance: PATIROMER
     Route: 048
     Dates: start: 201807
  5. METFORMIN HCL [Concomitant]
     Active Substance: METFORMIN HYDROCHLORIDE
  6. LISINOPRIL. [Concomitant]
     Active Substance: LISINOPRIL
  7. BUMETANIDE. [Concomitant]
     Active Substance: BUMETANIDE
  8. TOUJEO [Concomitant]
     Active Substance: INSULIN GLARGINE
  9. FERROUS SULFATE. [Concomitant]
     Active Substance: FERROUS SULFATE
  10. TAMSULOSIN HYDROCHLORIDE. [Concomitant]
     Active Substance: TAMSULOSIN HYDROCHLORIDE
  11. STOOL SOFTENER (DOCUSATE) [Concomitant]
     Active Substance: DOCUSATE
     Indication: CONSTIPATION

REACTIONS (8)
  - Staphylococcal infection [Unknown]
  - Peripheral swelling [Unknown]
  - Streptococcal infection [Unknown]
  - Blood potassium abnormal [Unknown]
  - Lymphoedema [Unknown]
  - Product dose omission [Unknown]
  - Constipation [Unknown]
  - Diarrhoea [Unknown]

NARRATIVE: CASE EVENT DATE: 2018
